FAERS Safety Report 4765636-7 (Version None)
Quarter: 2005Q3

REPORT INFORMATION
  Report Type: 
  Country: None (occurrence: None)
  Receive Date: 20050912
  Receipt Date: 20040928
  Transmission Date: 20060218
  Serious: Yes (Death)
  Sender: FDA-Public Use
  Company Number: PHHO2004JP13669

PATIENT
  Age: 85 Year
  Sex: Female

DRUGS (8)
  1. DIOVAN [Suspect]
     Dosage: 80 MG, QD
     Route: 048
     Dates: start: 20030701, end: 20030825
  2. DIOVAN [Suspect]
     Dosage: 160 MG, QD
     Route: 048
     Dates: start: 20030826, end: 20031005
  3. FRANDOL [Concomitant]
     Indication: ANGINA PECTORIS
  4. SIGMART [Concomitant]
     Indication: ANGINA PECTORIS
  5. DEPAS [Concomitant]
     Indication: ANXIETY
  6. BUFFERIN [Concomitant]
     Indication: CEREBRAL INFARCTION
  7. MUCOSTA [Concomitant]
     Indication: GASTRITIS
  8. LAC B [Concomitant]
     Indication: CONSTIPATION

REACTIONS (3)
  - ACUTE MYOCARDIAL INFARCTION [None]
  - CARDIO-RESPIRATORY ARREST [None]
  - DRUG INEFFECTIVE [None]
